FAERS Safety Report 9180736 (Version 1)
Quarter: 2013Q1

REPORT INFORMATION
  Report Type: Spontaneous
  Country: US (occurrence: None)
  Receive Date: 20130320
  Receipt Date: 20130320
  Transmission Date: 20140127
  Serious: Yes (Hospitalization, Other)
  Sender: FDA-Public Use
  Company Number: AUR-APL-2013-02433

PATIENT
  Age: 39 Year
  Sex: 0

DRUGS (5)
  1. CLOPIDOGREL (CLOPIDOGREL) [Suspect]
     Indication: CORONARY ARTERY DISEASE
     Dosage: 75 MG 1 D , UNKNOWN
  2. HYDROCHLOROTHIAZIDE (HYDROCHLOROTHIAZIDE) [Concomitant]
  3. FAMOTIDINE (FAMOTIDINE) [Concomitant]
  4. ASPIRIN (ACETYLSALICYLIC ACID)? [Concomitant]
  5. SIMVASATIN (SIMVASTATIN0 [Concomitant]

REACTIONS (4)
  - Cholestasis [None]
  - Hepatocellular injury [None]
  - Hepatic steatosis [None]
  - Hepatitis [None]
